FAERS Safety Report 7320912-9 (Version None)
Quarter: 2011Q1

REPORT INFORMATION
  Report Type: 
  Country: None (occurrence: None)
  Receive Date: 20110221
  Receipt Date: 20110221
  Transmission Date: 20110831
  Serious: Yes (Other)
  Sender: FDA-Public Use
  Company Number: None

PATIENT
  Age: 83 Year
  Sex: Male
  Weight: 81.6475 kg

DRUGS (1)
  1. MULTAQ [Suspect]
     Indication: ATRIAL FIBRILLATION
     Dosage: 400MG TWICE DAILY PO
     Route: 048
     Dates: start: 20110129, end: 20110217

REACTIONS (1)
  - LIVER FUNCTION TEST ABNORMAL [None]
